FAERS Safety Report 5098646-3 (Version None)
Quarter: 2006Q3

REPORT INFORMATION
  Report Type: 
  Country: None (occurrence: None)
  Receive Date: 20060907
  Receipt Date: 20060829
  Transmission Date: 20061208
  Serious: Yes (Other)
  Sender: FDA-Public Use
  Company Number: PHRM2006FR02454

PATIENT
  Age: 49 Year
  Sex: Male

DRUGS (3)
  1. TEGRETOL [Suspect]
     Indication: AGGRESSION
     Route: 048
     Dates: start: 20060801
  2. SOLIAN [Concomitant]
     Route: 048
  3. TAHOR [Concomitant]
     Route: 048

REACTIONS (2)
  - CEREBROVASCULAR ACCIDENT [None]
  - DYSARTHRIA [None]
